FAERS Safety Report 24302971 (Version 1)
Quarter: 2024Q3

REPORT INFORMATION
  Report Type: Spontaneous
  Country: US (occurrence: US)
  Receive Date: 20240910
  Receipt Date: 20240910
  Transmission Date: 20241017
  Serious: No
  Sender: VERO BIOTECH
  Company Number: US-VEROBIOTECH-2024USVEROSPO00210

PATIENT

DRUGS (1)
  1. GENOSYL [Suspect]
     Active Substance: NITRIC OXIDE
     Indication: Product used for unknown indication
     Dosage: 20 PPM

REACTIONS (3)
  - Exposure to toxic agent [Unknown]
  - Underdose [Unknown]
  - Device malfunction [Unknown]
